FAERS Safety Report 4432642-1 (Version None)
Quarter: 2004Q3

REPORT INFORMATION
  Report Type: 
  Country: None (occurrence: None)
  Receive Date: 20040823
  Receipt Date: 20040810
  Transmission Date: 20050211
  Serious: Yes (Death)
  Sender: FDA-Public Use
  Company Number: 2004054378

PATIENT
  Age: 66 Year
  Sex: Male

DRUGS (1)
  1. CEFOBID [Suspect]
     Indication: ILL-DEFINED DISORDER
     Dosage: ( 2 GRAM), INTRAVENOUS
     Route: 042
     Dates: start: 20040801, end: 20040801

REACTIONS (4)
  - CHEST PAIN [None]
  - GAZE PALSY [None]
  - HYPERHIDROSIS [None]
  - SUDDEN DEATH [None]
